FAERS Safety Report 9393068 (Version 1)
Quarter: 2013Q3

REPORT INFORMATION
  Report Type: Report from Study
  Country: US (occurrence: US)
  Receive Date: 20130710
  Receipt Date: 20130710
  Transmission Date: 20140515
  Serious: Yes (Life-Threatening)
  Sender: FDA-Public Use
  Company Number: US-009507513-1307USA004993

PATIENT
  Sex: 0

DRUGS (8)
  1. SYLATRON [Suspect]
     Indication: METASTATIC MALIGNANT MELANOMA
     Dosage: 1.5 MICROGRAM PER KILOGRAM, QW
     Route: 058
  2. SYLATRON [Suspect]
     Dosage: 3 MICROGRAM PER KILOGRAM, QW
     Route: 058
  3. SYLATRON [Suspect]
     Dosage: 3 MICROGRAM PER KILOGRAM, QW
     Route: 058
  4. SYLATRON [Suspect]
     Dosage: 4.5 MICROGRAM PER KILOGRAM, QW
     Route: 058
  5. DECITABINE [Suspect]
     Indication: METASTATIC MALIGNANT MELANOMA
     Dosage: 5 MG/M SUP 2/D
     Route: 042
  6. DECITABINE [Suspect]
     Dosage: 10 MG/M SUP 2 /D
     Route: 042
  7. DECITABINE [Suspect]
     Dosage: 15 MG/M SUP 2 /D
     Route: 042
  8. DECITABINE [Suspect]
     Dosage: 10 MG/M SUP 2 /D
     Route: 042

REACTIONS (4)
  - Anaemia [Unknown]
  - Neutropenia [Unknown]
  - Thrombocytopenia [Unknown]
  - Drug effect incomplete [Unknown]
